FAERS Safety Report 5599202-0 (Version None)
Quarter: 2008Q1

REPORT INFORMATION
  Report Type: 
  Country: None (occurrence: None)
  Receive Date: 20080122
  Receipt Date: 20080118
  Transmission Date: 20080703
  Serious: Yes (Hospitalization)
  Sender: FDA-Public Use
  Company Number: DE-MERCK-0801DEU00032

PATIENT
  Age: 47 Year
  Sex: Male

DRUGS (4)
  1. PRIMAXIN [Suspect]
     Indication: GASTROINTESTINAL INFECTION
     Route: 042
     Dates: start: 20080104, end: 20080106
  2. CEFUROXIME [Concomitant]
     Route: 065
     Dates: start: 20071201, end: 20080103
  3. METRONIDAZOLE [Concomitant]
     Route: 065
     Dates: start: 20071201
  4. CIPROFLOXACIN [Concomitant]
     Route: 065
     Dates: start: 20071201, end: 20071201

REACTIONS (3)
  - CEREBRAL INFARCTION [None]
  - CONVULSION [None]
  - SOMNOLENCE [None]
